FAERS Safety Report 10046914 (Version 1)
Quarter: 2014Q1

REPORT INFORMATION
  Report Type: Spontaneous
  Country: US (occurrence: US)
  Receive Date: 20140331
  Receipt Date: 20140331
  Transmission Date: 20141002
  Serious: Yes (Hospitalization)
  Sender: FDA-Public Use
  Company Number: US-BAYER-2014-045514

PATIENT
  Age: 40 Year
  Sex: Female
  Weight: 70.3 kg

DRUGS (9)
  1. YASMIN [Suspect]
  2. IBUPROFEN [Concomitant]
     Dosage: 800 MG EVERY 6 HOURS AS NEEDED
     Dates: start: 20070302
  3. LORAZEPAM [Concomitant]
     Dosage: 1 MG, ONE TABLET NIGHT BEFORE PROCEDURE;
     Dates: start: 20070302
  4. MEPHYTON [Concomitant]
     Dosage: 5 MG DAILY
     Dates: start: 20070302
  5. KEFLEX [Concomitant]
     Dosage: 500 MG, QID
     Dates: end: 20070302
  6. PROMETHAZINE [Concomitant]
     Dosage: 12.5 MG, UNK
     Dates: start: 20070313
  7. HYDROCODONE [HYDROCODONE] [Concomitant]
     Dosage: 5/500 TAB
     Dates: start: 20070313
  8. OXYCODONE/APAP [Concomitant]
     Dosage: 5/325 TAB
     Dates: start: 20070314
  9. CIPRO [Concomitant]
     Dosage: 500 MG, BID
     Dates: end: 20070322

REACTIONS (1)
  - Pulmonary embolism [None]
